FAERS Safety Report 5979428-4 (Version None)
Quarter: 2008Q4

REPORT INFORMATION
  Report Type: 
  Country: None (occurrence: None)
  Receive Date: 20081204
  Receipt Date: 20081121
  Transmission Date: 20090506
  Serious: Yes (Other)
  Sender: FDA-Public Use
  Company Number: FR-ELI_LILLY_AND_COMPANY-FR200808001204

PATIENT
  Age: 62 Year
  Sex: Female
  Weight: 85 kg

DRUGS (8)
  1. BYETTA [Suspect]
     Indication: TYPE 2 DIABETES MELLITUS
     Dosage: 10 UG, DAILY (1/D) (5 MCG IN THE MORNING, 5 MCG IN THE EVENING)
     Route: 058
     Dates: start: 20080731, end: 20080802
  2. FENOFIBRATE [Concomitant]
     Dosage: UNK, UNKNOWN
     Route: 048
  3. COVERSYL [Concomitant]
     Dosage: UNK, UNKNOWN
     Route: 048
  4. LYOGEN - SLOW RELEASE [Concomitant]
     Dosage: UNK, UNKNOWN
     Route: 048
  5. KARDEGIC [Concomitant]
     Dosage: UNK, UNKNOWN
     Route: 048
  6. LEVOTHYROX [Concomitant]
     Dosage: UNK, UNKNOWN
     Route: 048
  7. XANAX [Concomitant]
     Dosage: UNK, UNKNOWN
     Route: 048
  8. GLUCOVANCE [Concomitant]
     Indication: TYPE 2 DIABETES MELLITUS
     Dosage: UNK, UNKNOWN
     Route: 048

REACTIONS (1)
  - HYPERGLYCAEMIA [None]
